FAERS Safety Report 14986873 (Version 1)
Quarter: 2018Q2

REPORT INFORMATION
  Report Type: Spontaneous
  Country: PT (occurrence: PT)
  Receive Date: 20180608
  Receipt Date: 20180608
  Transmission Date: 20180711
  Serious: Yes (Life-Threatening, Hospitalization)
  Sender: FDA-Public Use
  Company Number: PT-TEVA-2018-PT-903068

PATIENT
  Age: 2 Year
  Weight: 12.75 kg

DRUGS (1)
  1. LAMOTRIGINE. [Suspect]
     Active Substance: LAMOTRIGINE
     Dosage: SINGLE ACCIDENTAL TAKE
     Route: 048
     Dates: start: 20180401, end: 20180401

REACTIONS (9)
  - Agitation [Recovered/Resolved]
  - Chorea [Recovered/Resolved]
  - Loss of consciousness [Recovered/Resolved]
  - Accidental exposure to product by child [Recovered/Resolved]
  - Thrombocytopenia [Recovered/Resolved]
  - Irritability [Recovered/Resolved]
  - Ataxia [Recovered/Resolved]
  - Seizure [Recovered/Resolved]
  - Opisthotonus [Recovered/Resolved]

NARRATIVE: CASE EVENT DATE: 20180401
